FAERS Safety Report 25022089 (Version 1)
Quarter: 2025Q1

REPORT INFORMATION
  Report Type: Spontaneous
  Country: US (occurrence: US)
  Receive Date: 20250228
  Receipt Date: 20250228
  Transmission Date: 20250408
  Serious: Yes (Hospitalization)
  Sender: NOVO NORDISK
  Company Number: US-NOVOPROD-1373987

PATIENT
  Age: 58 Year
  Sex: Male

DRUGS (1)
  1. OZEMPIC [Suspect]
     Active Substance: SEMAGLUTIDE
     Indication: Type 2 diabetes mellitus
     Dosage: 1 MG, QW
     Route: 058
     Dates: start: 202408, end: 20250113

REACTIONS (5)
  - Hiccups [Recovered/Resolved]
  - Dyspnoea [Recovered/Resolved]
  - Ileus [Unknown]
  - Diarrhoea [Recovering/Resolving]
  - Eructation [Recovered/Resolved]

NARRATIVE: CASE EVENT DATE: 20240101
